FAERS Safety Report 11898460 (Version 2)
Quarter: 2018Q2

REPORT INFORMATION
  Report Type: Spontaneous
  Country: IT (occurrence: IT)
  Receive Date: 20160108
  Receipt Date: 20180627
  Transmission Date: 20180711
  Serious: Yes (Death, Other)
  Sender: FDA-Public Use
  Company Number: PHHY2015IT171823

PATIENT
  Age: 38 Year
  Sex: Male
  Weight: 55 kg

DRUGS (4)
  1. DELORAZEPAM [Suspect]
     Active Substance: DELORAZEPAM
     Indication: PRODUCT USED FOR UNKNOWN INDICATION
     Route: 065
  2. TRIAZOLAM. [Interacting]
     Active Substance: TRIAZOLAM
     Indication: PRODUCT USED FOR UNKNOWN INDICATION
     Route: 065
  3. ALPRAZOLAM. [Suspect]
     Active Substance: ALPRAZOLAM
     Indication: PRODUCT USED FOR UNKNOWN INDICATION
     Route: 065
  4. ZOLPIDEM [Interacting]
     Active Substance: ZOLPIDEM\ZOLPIDEM TARTRATE
     Indication: PRODUCT USED FOR UNKNOWN INDICATION
     Route: 065

REACTIONS (5)
  - Drug interaction [Fatal]
  - Visceral congestion [Fatal]
  - Completed suicide [Fatal]
  - Pulmonary oedema [Fatal]
  - Toxicity to various agents [Fatal]
